FAERS Safety Report 8729986 (Version 4)
Quarter: 2012Q4

REPORT INFORMATION
  Report Type: 
  Country: US (occurrence: US)
  Receive Date: 20120817
  Receipt Date: 20121011
  Transmission Date: 20130627
  Serious: Yes (Death, Hospitalization)
  Sender: FDA-Public Use
  Company Number: US-GLAXOSMITHKLINE-A0977950A

PATIENT
  Age: 62 Year
  Sex: Male

DRUGS (5)
  1. VOTRIENT [Suspect]
     Indication: PRODUCT USED FOR UNKNOWN INDICATION
     Dosage: 800MG Per day
     Route: 048
  2. DEXAMETHASONE [Concomitant]
     Dosage: 1MG Unknown
     Route: 048
  3. TRAZODONE [Concomitant]
     Dosage: 50MG Unknown
     Route: 048
  4. OMEPRAZOLE [Concomitant]
     Dosage: 10MG Unknown
     Route: 048
  5. IBUPROFEN [Concomitant]
     Dosage: 200MG Unknown

REACTIONS (2)
  - Insomnia [Unknown]
  - Death [Fatal]
